FAERS Safety Report 15323048 (Version 1)
Quarter: 2018Q4

REPORT INFORMATION
  Report Type: Spontaneous
  Country: DK (occurrence: DK)
  Receive Date: 20180827
  Receipt Date: 20180827
  Transmission Date: 20190204
  Serious: Yes (Hospitalization)
  Sender: FDA-Public Use
  Company Number: DK-TEVA-2018-DK-947926

PATIENT
  Age: 81 Year
  Sex: Male

DRUGS (8)
  1. LINEZOLID ^TEVA^ [Suspect]
     Active Substance: LINEZOLID
     Indication: INFECTION
     Dosage: 1200 MILLIGRAM DAILY;
     Route: 048
     Dates: start: 201805
  2. LOSARTAN. [Concomitant]
     Active Substance: LOSARTAN
     Indication: HYPERTENSION
     Dosage: 100 MILLIGRAM DAILY;
     Route: 048
     Dates: start: 20161108
  3. PANTOPRAZOLE [Concomitant]
     Active Substance: PANTOPRAZOLE
     Indication: GASTRIC ULCER
     Dosage: 80 MILLIGRAM DAILY;
     Route: 048
     Dates: start: 20180302
  4. TADALAFIL. [Concomitant]
     Active Substance: TADALAFIL
     Indication: ERECTILE DYSFUNCTION
     Dosage: DOSIS: 1 TABLET EFTER BEHOV, 30 MIN F?R VIRKNING ?NSKES. STYRKE: 10 MG.
     Route: 048
     Dates: start: 20140603
  5. AMLODIPINE [Concomitant]
     Active Substance: AMLODIPINE BESYLATE
     Indication: HYPERTENSION
     Dosage: 10 MILLIGRAM DAILY;
     Route: 048
     Dates: start: 20141028
  6. CYANOCOBALAMIN. [Concomitant]
     Active Substance: CYANOCOBALAMIN
     Indication: VITAMIN B12 DEFICIENCY
     Dosage: 1 MILLIGRAM DAILY;
     Route: 048
     Dates: start: 20180615
  7. PARACETAMOL [Concomitant]
     Active Substance: ACETAMINOPHEN
     Indication: PAIN
     Dosage: DOSIS: 1 STIKPILLE VED BEHOV, H?JST 4 GANGE DAGLIG. STYRKE: 1000 MG.
     Route: 054
     Dates: start: 20180302
  8. LOPERAMIDE [Concomitant]
     Active Substance: LOPERAMIDE
     Indication: DIARRHOEA
     Dosage: DOSIS: 1 TABLET EFTER BEHOV, H?JST 1 GANG DAGLIG. STYRKE: 2 MG.
     Route: 048
     Dates: start: 20180612, end: 20180711

REACTIONS (3)
  - Hyponatraemia [Recovering/Resolving]
  - Fall [Unknown]
  - Dizziness [Unknown]

NARRATIVE: CASE EVENT DATE: 2018
